FAERS Safety Report 10017603 (Version 1)
Quarter: 2014Q1

REPORT INFORMATION
  Report Type: Spontaneous
  Country: US (occurrence: US)
  Receive Date: 20140318
  Receipt Date: 20140318
  Transmission Date: 20141002
  Serious: No
  Sender: FDA-Public Use
  Company Number: US-BRISTOL-MYERS SQUIBB COMPANY-17384868

PATIENT
  Age: 68 Year
  Sex: Male

DRUGS (5)
  1. ERBITUX [Suspect]
     Indication: SQUAMOUS CELL CARCINOMA OF THE TONGUE
  2. COZAAR [Concomitant]
  3. METFORMIN [Concomitant]
  4. MORPHINE [Concomitant]
  5. VICODIN [Concomitant]

REACTIONS (2)
  - Skin exfoliation [Unknown]
  - Erythema [Unknown]
